FAERS Safety Report 25622339 (Version 1)
Quarter: 2025Q3

REPORT INFORMATION
  Report Type: Spontaneous
  Country: US (occurrence: None)
  Receive Date: 20250729
  Receipt Date: 20250729
  Transmission Date: 20251021
  Serious: Yes (Death, Life-Threatening, Hospitalization)
  Sender: FDA-CTU
  Company Number: None

PATIENT

DRUGS (2)
  1. TRUQAP [Suspect]
     Active Substance: CAPIVASERTIB
     Dates: start: 20250408, end: 20250728
  2. TRUQAP [Concomitant]
     Active Substance: CAPIVASERTIB
     Dates: start: 20250408, end: 20250728

REACTIONS (2)
  - Diabetic ketoacidosis [None]
  - Hyperglycaemia [None]

NARRATIVE: CASE EVENT DATE: 20250726
